FAERS Safety Report 7417009 (Version 9)
Quarter: 2012Q4

REPORT INFORMATION
  Report Type: 
  Country: JP (occurrence: JP)
  Receive Date: 20100611
  Receipt Date: 20121022
  Transmission Date: 20130627
  Serious: Yes (Hospitalization, Other)
  Sender: FDA-Public Use
  Company Number: PHHY2010JP25963

PATIENT
  Age: 60 Year
  Sex: Male

DRUGS (1)
  1. TEGRETOL [Suspect]
     Indication: GRAND MAL CONVULSION
     Dosage: 400 mg, UNK
     Route: 048
     Dates: start: 20100306, end: 20100406

REACTIONS (18)
  - Diabetes mellitus [Not Recovered/Not Resolved]
  - Diabetic ketoacidosis [Recovered/Resolved with Sequelae]
  - Hyperglycaemia [Unknown]
  - Thirst [Unknown]
  - Polydipsia [Unknown]
  - Polyuria [Unknown]
  - Blood insulin decreased [Unknown]
  - Glycosylated haemoglobin increased [Unknown]
  - Hypoaldosteronism [Unknown]
  - Drug reaction with eosinophilia and systemic symptoms [Recovering/Resolving]
  - Blood potassium increased [Unknown]
  - Rash erythematous [Recovered/Resolved]
  - Hepatic function abnormal [Recovering/Resolving]
  - Lymphocyte morphology abnormal [Unknown]
  - Pyrexia [Not Recovered/Not Resolved]
  - Arthralgia [Unknown]
  - Malaise [Unknown]
  - Pancreatic enzymes increased [Unknown]
